FAERS Safety Report 23080326 (Version 1)
Quarter: 2023Q4

REPORT INFORMATION
  Report Type: Spontaneous
  Country: US (occurrence: None)
  Receive Date: 20231018
  Receipt Date: 20231018
  Transmission Date: 20240110
  Serious: Yes (Hospitalization)
  Sender: FDA-Public Use
  Company Number: None

PATIENT
  Age: 76 Year
  Sex: Male

DRUGS (1)
  1. CHLORTHALIDONE [Suspect]
     Active Substance: CHLORTHALIDONE
     Dates: start: 20220406, end: 20221121

REACTIONS (9)
  - Pneumothorax [None]
  - Rib fracture [None]
  - Fall [None]
  - Hypotension [None]
  - Physical deconditioning [None]
  - Treatment noncompliance [None]
  - Dehydration [None]
  - Blood pressure increased [None]
  - Therapy cessation [None]

NARRATIVE: CASE EVENT DATE: 20221114
